FAERS Safety Report 10566090 (Version 2)
Quarter: 2016Q1

REPORT INFORMATION
  Report Type: Spontaneous
  Country: US (occurrence: US)
  Receive Date: 20141105
  Receipt Date: 20160202
  Transmission Date: 20160525
  Serious: Yes (Other)
  Sender: FDA-Public Use
  Company Number: US-PFIZER INC-2014305377

PATIENT
  Sex: Female

DRUGS (1)
  1. LYRICA [Suspect]
     Active Substance: PREGABALIN
     Dosage: UNK

REACTIONS (10)
  - Retinal detachment [Unknown]
  - Photopsia [Unknown]
  - Vitreous detachment [Unknown]
  - Retinal tear [Unknown]
  - Visual acuity reduced [Unknown]
  - Nightmare [Unknown]
  - Ocular hyperaemia [Unknown]
  - Vitreous floaters [Unknown]
  - Dry mouth [Unknown]
  - Dysuria [Unknown]

NARRATIVE: CASE EVENT DATE: 201410
